FAERS Safety Report 5700353-8 (Version None)
Quarter: 2008Q2

REPORT INFORMATION
  Report Type: 
  Country: None (occurrence: None)
  Receive Date: 20080410
  Receipt Date: 20080328
  Transmission Date: 20081010
  Serious: Yes (Life-Threatening, Other)
  Sender: FDA-Public Use
  Company Number: IE-PFIZER INC-2008017153

PATIENT
  Sex: Female

DRUGS (7)
  1. CHAMPIX [Suspect]
     Route: 048
     Dates: start: 20071101, end: 20071101
  2. VENTOLIN [Concomitant]
  3. MESALAMINE [Concomitant]
     Route: 048
  4. FOLIC ACID [Concomitant]
     Dosage: DAILY DOSE:5MG
  5. IMURAN [Concomitant]
     Dosage: DAILY DOSE:150MG
  6. ENTOCORT EC [Concomitant]
     Dosage: DAILY DOSE:6MG
  7. BECLAZONE [Concomitant]

REACTIONS (5)
  - DEPRESSED MOOD [None]
  - DEPRESSION [None]
  - IRRITABILITY [None]
  - SOCIAL AVOIDANT BEHAVIOUR [None]
  - SUICIDAL IDEATION [None]
